FAERS Safety Report 13302587 (Version 1)
Quarter: 2017Q1

REPORT INFORMATION
  Report Type: Spontaneous
  Country: US (occurrence: US)
  Receive Date: 20170307
  Receipt Date: 20170307
  Transmission Date: 20170428
  Serious: Yes (Other)
  Sender: FDA-Public Use
  Company Number: US-JNJFOC-20150712106

PATIENT
  Age: 15 Year
  Sex: Male

DRUGS (1)
  1. RISPERDAL [Suspect]
     Active Substance: RISPERIDONE
     Indication: SCHIZOPHRENIA
     Route: 048
     Dates: start: 1997, end: 2008

REACTIONS (5)
  - Gynaecomastia [Unknown]
  - Blood prolactin increased [Unknown]
  - Therapeutic response decreased [Unknown]
  - Extrapyramidal disorder [Unknown]
  - Obesity [Unknown]

NARRATIVE: CASE EVENT DATE: 2000
